FAERS Safety Report 24242445 (Version 2)
Quarter: 2025Q1

REPORT INFORMATION
  Report Type: Report from Study
  Country: US (occurrence: US)
  Receive Date: 20240823
  Receipt Date: 20250123
  Transmission Date: 20250409
  Serious: Yes (Hospitalization, Other)
  Sender: Pyros Pharmaceuticals
  Company Number: US-PYROS PHARMACEUTICALS, INC-2024-PYROS-US000036

PATIENT
  Sex: Male
  Weight: 94.35 kg

DRUGS (8)
  1. VIGPODER [Suspect]
     Active Substance: VIGABATRIN
     Indication: Epilepsy
     Dosage: 1000 MG, BID
     Route: 048
     Dates: start: 20240614
  2. VIGPODER [Suspect]
     Active Substance: VIGABATRIN
     Indication: Lennox-Gastaut syndrome
  3. DEPAKOTE [Concomitant]
     Active Substance: DIVALPROEX SODIUM
     Indication: Seizure
     Dosage: 500 MG, BID
     Route: 048
     Dates: start: 20160601
  4. BANZEL [Concomitant]
     Active Substance: RUFINAMIDE
     Indication: Lennox-Gastaut syndrome
     Dosage: 600 MG, BID
     Route: 048
     Dates: start: 20190601
  5. EPIDIOLEX [Concomitant]
     Active Substance: CANNABIDIOL
     Indication: Lennox-Gastaut syndrome
     Dosage: 100 MG, BID
     Route: 048
     Dates: start: 20180601
  6. NAYZILAM [Concomitant]
     Active Substance: MIDAZOLAM
     Indication: Seizure
     Route: 045
     Dates: start: 20220601
  7. VITAMINS [Concomitant]
     Active Substance: VITAMINS
     Indication: Hypovitaminosis
     Dosage: 1 DOSAGE FORM, DAILY
     Route: 048
     Dates: start: 20240201
  8. VALIUM [Concomitant]
     Active Substance: DIAZEPAM
     Indication: Seizure
     Dosage: 2 MG, TID
     Route: 048
     Dates: start: 20240601

REACTIONS (14)
  - Generalised tonic-clonic seizure [Not Recovered/Not Resolved]
  - Seizure [Not Recovered/Not Resolved]
  - Partial seizures [Not Recovered/Not Resolved]
  - Petit mal epilepsy [Not Recovered/Not Resolved]
  - Drug ineffective [Not Recovered/Not Resolved]
  - Weight increased [Not Recovered/Not Resolved]
  - Visual impairment [Not Recovered/Not Resolved]
  - Mood swings [Not Recovered/Not Resolved]
  - Aggression [Not Recovered/Not Resolved]
  - Ear pain [Not Recovered/Not Resolved]
  - Increased appetite [Not Recovered/Not Resolved]
  - Acne [Not Recovered/Not Resolved]
  - Insomnia [Not Recovered/Not Resolved]
  - Rash [Not Recovered/Not Resolved]

NARRATIVE: CASE EVENT DATE: 20240101
